FAERS Safety Report 6119066-6 (Version None)
Quarter: 2009Q1

REPORT INFORMATION
  Report Type: 
  Country: None (occurrence: None)
  Receive Date: 20090316
  Receipt Date: 20090306
  Transmission Date: 20090719
  Serious: Yes (Other)
  Sender: FDA-Public Use
  Company Number: BE-BAYER-200913345GPV

PATIENT
  Age: 57 Year
  Sex: Female

DRUGS (1)
  1. ULTRAVIST 150 [Suspect]
     Indication: ANGIOGRAM
     Route: 042

REACTIONS (2)
  - BLOOD PRESSURE INCREASED [None]
  - RAYNAUD'S PHENOMENON [None]
